FAERS Safety Report 11488642 (Version 1)
Quarter: 2015Q3

REPORT INFORMATION
  Report Type: Spontaneous
  Country: US (occurrence: US)
  Receive Date: 20150910
  Receipt Date: 20150910
  Transmission Date: 20151125
  Serious: Yes (Hospitalization)
  Sender: FDA-Public Use
  Company Number: US-ROCHE-1450437

PATIENT
  Age: 51 Year
  Sex: Male

DRUGS (7)
  1. SERTRALINE [Concomitant]
     Active Substance: SERTRALINE HYDROCHLORIDE
     Dosage: INCREASE IN DOSE IN RESPONSE TO SUICIDAL IDEATION
     Route: 065
  2. SERTRALINE [Concomitant]
     Active Substance: SERTRALINE HYDROCHLORIDE
     Indication: BIPOLAR DISORDER
     Route: 065
  3. RIBAVIRIN. [Suspect]
     Active Substance: RIBAVIRIN
     Indication: HEPATITIS C
     Route: 048
     Dates: start: 200206
  4. LITHIUM CARBONATE. [Concomitant]
     Active Substance: LITHIUM CARBONATE
     Indication: BIPOLAR DISORDER
     Route: 065
  5. SERTRALINE [Concomitant]
     Active Substance: SERTRALINE HYDROCHLORIDE
     Dosage: INCREASED DOSE DUE TO ADVERSE EVENTS
     Route: 065
  6. PEG-INTERFERON ALFA 2A [Suspect]
     Active Substance: PEGINTERFERON ALFA-2A
     Indication: HEPATITIS C
     Dosage: REPORTED AS PEGYLATED INTERFERON ALPHA
     Route: 058
     Dates: start: 200206
  7. LEVOTHYROXINE. [Concomitant]
     Active Substance: LEVOTHYROXINE
     Indication: BIPOLAR DISORDER
     Route: 065

REACTIONS (5)
  - Flat affect [Recovered/Resolved]
  - Suicidal ideation [Recovered/Resolved]
  - Psychomotor retardation [Recovered/Resolved]
  - Depression [Recovered/Resolved]
  - Hypomania [Recovered/Resolved]
